FAERS Safety Report 7446376-2 (Version None)
Quarter: 2011Q2

REPORT INFORMATION
  Report Type: 
  Country: None (occurrence: None)
  Receive Date: 20110429
  Receipt Date: 20100831
  Transmission Date: 20111010
  Serious: No
  Sender: FDA-Public Use
  Company Number: US-ASTRAZENECA-2010SE40940

PATIENT
  Age: 82 Year
  Sex: Female
  Weight: 68 kg

DRUGS (4)
  1. NEXIUM [Suspect]
     Indication: GASTROOESOPHAGEAL REFLUX DISEASE
     Route: 048
     Dates: start: 20100801
  2. RESTASIS [Concomitant]
  3. BLOOD PRESSURE MEDICATION [Concomitant]
  4. CALCIUM [Concomitant]

REACTIONS (3)
  - DYSPHONIA [None]
  - THROAT IRRITATION [None]
  - DRUG INEFFECTIVE [None]
